FAERS Safety Report 4401055-0 (Version None)
Quarter: 2004Q3

REPORT INFORMATION
  Report Type: 
  Country: None (occurrence: None)
  Receive Date: 20040907
  Receipt Date: 20031010
  Transmission Date: 20050211
  Serious: No
  Sender: FDA-Public Use
  Company Number: US-BRISTOL-MYERS SQUIBB COMPANY-12408043

PATIENT
  Age: 69 Year
  Sex: Female
  Weight: 68 kg

DRUGS (3)
  1. COUMADIN [Suspect]
     Indication: THROMBOSIS
     Route: 048
  2. DILANTIN [Concomitant]
  3. LORAZEPAM [Concomitant]
     Dosage: TAKEN AT NIGHT.

REACTIONS (2)
  - HYPOAESTHESIA [None]
  - PARAESTHESIA [None]
